FAERS Safety Report 10016669 (Version 1)
Quarter: 2014Q1

REPORT INFORMATION
  Report Type: Spontaneous
  Country: US (occurrence: US)
  Receive Date: 20140317
  Receipt Date: 20140317
  Transmission Date: 20141002
  Serious: Yes (Other)
  Sender: FDA-Public Use
  Company Number: US-GE HEALTHCARE MEDICAL DIAGNOSTICS-OSCN-PR-0810S-0570

PATIENT
  Age: 60 Year
  Sex: Male

DRUGS (1)
  1. OMNISCAN [Suspect]
     Indication: TRANSPLANT EVALUATION
     Dates: start: 20041120, end: 20041120

REACTIONS (1)
  - Nephrogenic systemic fibrosis [Not Recovered/Not Resolved]
